FAERS Safety Report 25942951 (Version 1)
Quarter: 2025Q4

REPORT INFORMATION
  Report Type: Spontaneous
  Country: US (occurrence: US)
  Receive Date: 20251021
  Receipt Date: 20251021
  Transmission Date: 20260117
  Serious: No
  Sender: SOLENO THERAPEUTICS
  Company Number: US-SOLENO THERAPEUTICS, INC.-SOL2025000600

PATIENT
  Age: 16 Year
  Sex: Male
  Weight: 49.887 kg

DRUGS (3)
  1. VYKAT XR [Suspect]
     Active Substance: DIAZOXIDE CHOLINE
     Indication: Prader-Willi syndrome
     Dosage: UNK
     Route: 048
     Dates: start: 2025, end: 2025
  2. VYKAT XR [Suspect]
     Active Substance: DIAZOXIDE CHOLINE
     Dosage: 225 MILLIGRAM, QD (ONE 150MG TAB AND ONE 75MG TAB)
     Route: 048
     Dates: start: 2025
  3. SOMATROPIN [Concomitant]
     Active Substance: SOMATROPIN
     Indication: Product used for unknown indication
     Dosage: UNK
     Route: 065

REACTIONS (1)
  - Pain [Unknown]

NARRATIVE: CASE EVENT DATE: 20250918
